FAERS Safety Report 4306006-5 (Version None)
Quarter: 2004Q1

REPORT INFORMATION
  Report Type: 
  Country: None (occurrence: None)
  Receive Date: 20040225
  Receipt Date: 20040206
  Transmission Date: 20041129
  Serious: Yes (Hospitalization)
  Sender: FDA-Public Use
  Company Number: USA011210290

PATIENT
  Age: 70 Year
  Sex: Male
  Weight: 77 kg

DRUGS (5)
  1. PROZAC [Suspect]
     Indication: DEPRESSION
     Dosage: 20 MG/DAY
  2. ZYPREXA [Suspect]
     Indication: BIPOLAR DISORDER
     Dosage: 5 MG/DAY
  3. IBRIUM (CHLORDIAZEPOXIDE HYDROCHLORIDE) [Concomitant]
  4. NORVASC [Concomitant]
  5. BEXTRA [Concomitant]

REACTIONS (9)
  - ABNORMAL DREAMS [None]
  - BACK PAIN [None]
  - CARDIOMEGALY [None]
  - DIZZINESS POSTURAL [None]
  - EYE SWELLING [None]
  - NECK PAIN [None]
  - PAIN [None]
  - PSORIASIS [None]
  - SOMNOLENCE [None]
